FAERS Safety Report 20354623 (Version 2)
Quarter: 2022Q1

REPORT INFORMATION
  Report Type: Report from Study
  Country: US (occurrence: US)
  Receive Date: 20220120
  Receipt Date: 20220310
  Transmission Date: 20220423
  Serious: Yes (Hospitalization)
  Sender: FDA-Public Use
  Company Number: US-ABBVIE-22K-163-4239753-00

PATIENT
  Age: 31 Year
  Sex: Female

DRUGS (2)
  1. HUMIRA [Suspect]
     Active Substance: ADALIMUMAB
     Indication: Psoriatic arthropathy
     Route: 058
     Dates: start: 20211205, end: 20211231
  2. HUMIRA [Suspect]
     Active Substance: ADALIMUMAB
     Route: 058
     Dates: start: 2022, end: 20220220

REACTIONS (7)
  - Joint range of motion decreased [Recovering/Resolving]
  - Mobility decreased [Recovering/Resolving]
  - Dysstasia [Recovering/Resolving]
  - Gait disturbance [Not Recovered/Not Resolved]
  - Night sweats [Unknown]
  - Spinal operation [Unknown]
  - Pain [Unknown]

NARRATIVE: CASE EVENT DATE: 20211201
